FAERS Safety Report 17601793 (Version 2)
Quarter: 2020Q2

REPORT INFORMATION
  Report Type: Report from Study
  Country: CO (occurrence: CO)
  Receive Date: 20200330
  Receipt Date: 20200427
  Transmission Date: 20200713
  Serious: Yes (Other)
  Sender: FDA-Public Use
  Company Number: CO-JNJFOC-20191142020

PATIENT
  Sex: Female
  Weight: 53 kg

DRUGS (7)
  1. FERRITIN [Concomitant]
     Active Substance: FERRITIN
  2. ANEXIA [Concomitant]
  3. STELARA [Suspect]
     Active Substance: USTEKINUMAB
     Route: 058
     Dates: start: 20191010
  4. AMLODIPINE [Concomitant]
     Active Substance: AMLODIPINE BESYLATE
     Route: 065
  5. BIOCALCIUM                         /00751501/ [Concomitant]
     Route: 065
  6. STELARA [Suspect]
     Active Substance: USTEKINUMAB
     Indication: PSORIATIC ARTHROPATHY
     Route: 058
     Dates: start: 20190507
  7. PANCREATIN [Concomitant]
     Active Substance: PANCRELIPASE

REACTIONS (4)
  - Paraesthesia [Unknown]
  - Skin exfoliation [Unknown]
  - Product dose omission [Unknown]
  - Psoriatic arthropathy [Not Recovered/Not Resolved]

NARRATIVE: CASE EVENT DATE: 2019
